FAERS Safety Report 9223878 (Version 2)
Quarter: 2013Q2

REPORT INFORMATION
  Report Type: Report from Study
  Country: FR (occurrence: FR)
  Receive Date: 20130411
  Receipt Date: 20130621
  Transmission Date: 20140414
  Serious: Yes (Death, Hospitalization)
  Sender: FDA-Public Use
  Company Number: FR-BIOGENIDEC-2013BI030730

PATIENT
  Age: 69 Year
  Sex: Female
  Weight: 106 kg

DRUGS (7)
  1. TYSABRI [Suspect]
     Indication: MULTIPLE SCLEROSIS
     Route: 042
     Dates: start: 20080320, end: 20130307
  2. LYRICA [Concomitant]
     Indication: MUSCLE SPASTICITY
     Dates: start: 20120125, end: 20130317
  3. RIVOTRIL [Concomitant]
     Indication: MUSCLE SPASTICITY
     Dates: end: 20120125
  4. LEVOTHYROX [Concomitant]
  5. VESICARE [Concomitant]
  6. BISOPROLOL [Concomitant]
  7. ALTEIS [Concomitant]

REACTIONS (1)
  - Pulmonary embolism [Fatal]
